FAERS Safety Report 7183256-4 (Version None)
Quarter: 2010Q4

REPORT INFORMATION
  Report Type: 
  Country: None (occurrence: None)
  Receive Date: 20101222
  Receipt Date: 20100512
  Transmission Date: 20110411
  Serious: No
  Sender: FDA-Public Use
  Company Number: A0857946A

PATIENT
  Sex: Female

DRUGS (1)
  1. FLOVENT [Suspect]
     Route: 065

REACTIONS (6)
  - BURNING SENSATION [None]
  - DIZZINESS [None]
  - DRUG TOLERANCE [None]
  - HEADACHE [None]
  - HYPERSENSITIVITY [None]
  - THERMAL BURN [None]
